FAERS Safety Report 7035422-6 (Version None)
Quarter: 2010Q4

REPORT INFORMATION
  Report Type: 
  Country: None (occurrence: None)
  Receive Date: 20101008
  Receipt Date: 20100927
  Transmission Date: 20110411
  Serious: Yes (Other)
  Sender: FDA-Public Use
  Company Number: US-PFIZER INC-2010100596

PATIENT
  Sex: Male
  Weight: 75.737 kg

DRUGS (8)
  1. TOVIAZ [Suspect]
     Indication: URINARY INCONTINENCE
     Dosage: 8 MG, DAILY
     Route: 048
     Dates: start: 20100730, end: 20100801
  2. TOVIAZ [Suspect]
     Indication: BLADDER IRRITATION
  3. LUNESTA [Concomitant]
     Indication: SLEEP DISORDER
     Dosage: UNK
  4. AMBIEN [Concomitant]
     Dosage: UNIT DOSE: 12.5
  5. METFORMIN [Concomitant]
     Dosage: UNIT DOSE: 500
  6. PERCOCET [Concomitant]
     Indication: PAIN
     Dosage: UNIT DOSE: 5; FREQUENCY: EVERY 6 HOURS AS NEEDED,
  7. XANAX [Concomitant]
     Dosage: FREQUENCY: AS NEEDED,
  8. VIAGRA [Concomitant]
     Dosage: UNK

REACTIONS (1)
  - SLEEP DISORDER [None]
